FAERS Safety Report 5590012-7 (Version None)
Quarter: 2007Q4

REPORT INFORMATION
  Report Type: 
  Country: None (occurrence: None)
  Receive Date: 20071212
  Receipt Date: 20070926
  Transmission Date: 20080405
  Serious: Yes (Hospitalization)
  Sender: FDA-Public Use
  Company Number: USA-2007-0029406

PATIENT
  Sex: Male

DRUGS (2)
  1. OXYCONTIN [Suspect]
     Indication: PAIN
     Dosage: ORAL
     Route: 048
     Dates: start: 19950101, end: 20070917
  2. HYDROCODONE (HYDROCODONE) [Suspect]
     Indication: BREAKTHROUGH PAIN
     Dates: start: 19950101, end: 20070917

REACTIONS (17)
  - ANOREXIA [None]
  - DIARRHOEA [None]
  - DRUG REHABILITATION [None]
  - EMOTIONAL DISORDER [None]
  - EUPHORIC MOOD [None]
  - FAECES DISCOLOURED [None]
  - FEAR [None]
  - HEART RATE DECREASED [None]
  - HYPERHIDROSIS [None]
  - INSOMNIA [None]
  - MENTAL STATUS CHANGES [None]
  - PAIN [None]
  - RESTLESS LEGS SYNDROME [None]
  - RESTLESSNESS [None]
  - VOMITING [None]
  - WITHDRAWAL SYNDROME [None]
  - YAWNING [None]
